FAERS Safety Report 5861715-1 (Version None)
Quarter: 2008Q3

REPORT INFORMATION
  Report Type: 
  Country: None (occurrence: None)
  Receive Date: 20080826
  Receipt Date: 20080814
  Transmission Date: 20090109
  Serious: Yes (Death)
  Sender: FDA-Public Use
  Company Number: DAV-AE-PTU-08-002

PATIENT

DRUGS (1)
  1. PROPYL-THIOURACIL [Suspect]
     Indication: VASCULITIS

REACTIONS (8)
  - ANTI-NEUTROPHIL CYTOPLASMIC ANTIBODY POSITIVE VASCULITIS [None]
  - ANTINEUTROPHIL CYTOPLASMIC ANTIBODY POSITIVE [None]
  - GLOMERULONEPHRITIS [None]
  - GLOMERULONEPHRITIS MEMBRANOUS [None]
  - GLOMERULONEPHRITIS PROLIFERATIVE [None]
  - GLOMERULONEPHRITIS RAPIDLY PROGRESSIVE [None]
  - IGA NEPHROPATHY [None]
  - NEPHRITIS INTERSTITIAL [None]
